FAERS Safety Report 18242442 (Version 1)
Quarter: 2020Q3

REPORT INFORMATION
  Report Type: Spontaneous
  Country: PL (occurrence: PL)
  Receive Date: 20200908
  Receipt Date: 20200908
  Transmission Date: 20201103
  Serious: Yes (Other)
  Sender: FDA-Public Use
  Company Number: PL-PFIZER INC-2020340580

PATIENT
  Age: 67 Year
  Sex: Male

DRUGS (2)
  1. DAUNORUBICIN [Suspect]
     Active Substance: DAUNORUBICIN
     Indication: ACUTE MYELOID LEUKAEMIA
     Dosage: 45 MG/M2 FOR 3 DAYS, CYCLIC
  2. CYTARABINE. [Suspect]
     Active Substance: CYTARABINE
     Indication: ACUTE MYELOID LEUKAEMIA
     Dosage: 100 MG/M2 C.I. FOR 7 DAYS, CYCLIC

REACTIONS (2)
  - Bacterial sepsis [Unknown]
  - Hepatotoxicity [Unknown]
